FAERS Safety Report 17474891 (Version 1)
Quarter: 2020Q1

REPORT INFORMATION
  Report Type: Spontaneous
  Country: US (occurrence: US)
  Receive Date: 20200228
  Receipt Date: 20200228
  Transmission Date: 20200409
  Serious: Yes (Hospitalization)
  Sender: FDA-Public Use
  Company Number: US-ASTRAZENECA-2020SE28238

PATIENT
  Age: 86 Day
  Sex: Female

DRUGS (4)
  1. SYNAGIS [Suspect]
     Active Substance: PALIVIZUMAB
     Indication: BRONCHOPULMONARY DYSPLASIA
     Route: 030
  2. SYNAGIS [Suspect]
     Active Substance: PALIVIZUMAB
     Indication: BRONCHOPULMONARY DYSPLASIA
     Route: 030
     Dates: start: 20200128, end: 20200128
  3. SYNAGIS [Suspect]
     Active Substance: PALIVIZUMAB
     Indication: OSTEORADIONECROSIS
     Route: 030
     Dates: start: 20200128, end: 20200128
  4. SYNAGIS [Suspect]
     Active Substance: PALIVIZUMAB
     Indication: OSTEORADIONECROSIS
     Route: 030

REACTIONS (1)
  - Respiratory syncytial virus infection [Unknown]

NARRATIVE: CASE EVENT DATE: 20200131
